FAERS Safety Report 8317596-X (Version None)
Quarter: 2012Q2

REPORT INFORMATION
  Report Type: 
  Country: None (occurrence: None)
  Receive Date: 20120427
  Receipt Date: 20110608
  Transmission Date: 20120825
  Serious: No
  Sender: FDA-Public Use
  Company Number: US-GLAXOSMITHKLINE-A0931956A

PATIENT
  Age: 63 Year
  Sex: Male

DRUGS (1)
  1. ONDANSETRON [Suspect]
     Indication: VOMITING
     Dosage: 8MG AS REQUIRED
     Route: 065

REACTIONS (2)
  - VOMITING [None]
  - DRUG INEFFECTIVE [None]
